FAERS Safety Report 17940950 (Version 1)
Quarter: 2020Q2

REPORT INFORMATION
  Report Type: Spontaneous
  Country: US (occurrence: US)
  Receive Date: 20200624
  Receipt Date: 20200624
  Transmission Date: 20200714
  Serious: No
  Sender: FDA-Public Use
  Company Number: US-AMGEN-USASP2020099206

PATIENT
  Sex: Female

DRUGS (1)
  1. PROLIA [Suspect]
     Active Substance: DENOSUMAB
     Indication: PRODUCT USED FOR UNKNOWN INDICATION
     Dosage: UNK
     Route: 065

REACTIONS (6)
  - Scab [Unknown]
  - Skin fissures [Unknown]
  - Skin exfoliation [Unknown]
  - Impaired healing [Not Recovered/Not Resolved]
  - Rash papular [Not Recovered/Not Resolved]
  - Hypertension [Not Recovered/Not Resolved]

NARRATIVE: CASE EVENT DATE: 2020
